FAERS Safety Report 6472376-5 (Version None)
Quarter: 2009Q4

REPORT INFORMATION
  Report Type: 
  Country: None (occurrence: None)
  Receive Date: 20091125
  Receipt Date: 20091111
  Transmission Date: 20100525
  Serious: Yes (Other)
  Sender: FDA-Public Use
  Company Number: S06-IRL-01778-01

PATIENT
  Age: 40 Year
  Sex: Male

DRUGS (1)
  1. LEXAPRO [Suspect]
     Indication: DEPRESSION
     Dosage: 10 MG (10 MG, 1  IN 1 D),ORAL
     Route: 048

REACTIONS (2)
  - CONVULSION [None]
  - ELECTROLYTE IMBALANCE [None]
